FAERS Safety Report 19171471 (Version 1)
Quarter: 2021Q2

REPORT INFORMATION
  Report Type: Spontaneous
  Country: US (occurrence: US)
  Receive Date: 20210421
  Receipt Date: 20210421
  Transmission Date: 20210717
  Serious: Yes (Other)
  Sender: FDA-Public Use
  Company Number: None

PATIENT
  Age: 29 Year
  Sex: Female
  Weight: 43 kg

DRUGS (4)
  1. DOXYCLINE 100MG LV TIW [Concomitant]
     Dates: start: 20210409
  2. CEFIRIAXONE ZGM IV UAD [Concomitant]
     Dates: start: 20210405
  3. OCTAGAM IMMUNE GLOBULIN (HUMAN) [Suspect]
     Active Substance: HUMAN IMMUNOGLOBULIN G
     Indication: HYPOGAMMAGLOBULINAEMIA
     Dosage: OTHER FREQUENCY:EVERY 6 WEEKS;?
     Dates: start: 20210403, end: 20210403
  4. ASITHROMYCIN 500MG IVTIW [Concomitant]
     Dates: start: 20210409

REACTIONS (1)
  - Meningitis aseptic [None]
